FAERS Safety Report 7807891-2 (Version None)
Quarter: 2011Q4

REPORT INFORMATION
  Report Type: 
  Country: None (occurrence: None)
  Receive Date: 20111011
  Receipt Date: 20110926
  Transmission Date: 20120403
  Serious: Yes (Other)
  Sender: FDA-Public Use
  Company Number: IE-WATSON-2011-16107

PATIENT
  Age: 10 Year
  Sex: Female

DRUGS (6)
  1. MORPHINE SULFATE [Suspect]
     Indication: ANAESTHESIA
  2. HYDROMORPHONE HYDROCHLORIDE [Suspect]
     Indication: ANAESTHESIA
  3. DOPAMINE HCL [Suspect]
     Indication: ANAESTHESIA
  4. MIDAZOLAM HCL [Suspect]
     Indication: ANAESTHESIA
  5. KETAMINE HCL [Suspect]
     Indication: ANAESTHESIA
  6. EPINEPHRINE [Suspect]
     Indication: ANAESTHESIA

REACTIONS (3)
  - CARDIAC ARREST [None]
  - HYPOTENSION [None]
  - BRADYCARDIA [None]
